FAERS Safety Report 24645836 (Version 1)
Quarter: 2024Q4

REPORT INFORMATION
  Report Type: Spontaneous
  Country: CN (occurrence: CN)
  Receive Date: 20241121
  Receipt Date: 20241121
  Transmission Date: 20250114
  Serious: Yes (Death)
  Sender: NOVITIUM PHARMA
  Company Number: CN-NOVITIUMPHARMA-2024CNNVP02593

PATIENT
  Age: 73 Year
  Sex: Female

DRUGS (10)
  1. PREDNISONE [Suspect]
     Active Substance: PREDNISONE
     Indication: Diffuse large B-cell lymphoma
     Dosage: R-CHOP REGIMEN
  2. PREDNISONE [Suspect]
     Active Substance: PREDNISONE
     Indication: Adenocarcinoma of colon
  3. RITUXIMAB [Concomitant]
     Active Substance: RITUXIMAB
     Dosage: R-CHOP REGIMEN
  4. RITUXIMAB [Concomitant]
     Active Substance: RITUXIMAB
  5. CYCLOPHOSPHAMIDE [Concomitant]
     Active Substance: CYCLOPHOSPHAMIDE
     Dosage: R-CHOP REGIMEN
  6. CYCLOPHOSPHAMIDE [Concomitant]
     Active Substance: CYCLOPHOSPHAMIDE
  7. DOXORUBICIN [Concomitant]
     Active Substance: DOXORUBICIN
     Dosage: R-CHOP REGIMEN
  8. DOXORUBICIN [Concomitant]
     Active Substance: DOXORUBICIN
  9. VINCRISTINE [Concomitant]
     Active Substance: VINCRISTINE
     Dosage: R-CHOP REGIMEN
  10. VINCRISTINE [Concomitant]
     Active Substance: VINCRISTINE

REACTIONS (1)
  - Drug ineffective [Fatal]
